FAERS Safety Report 9383500 (Version 1)
Quarter: 2013Q3

REPORT INFORMATION
  Report Type: Spontaneous
  Country: US (occurrence: US)
  Receive Date: 20130704
  Receipt Date: 20130704
  Transmission Date: 20140515
  Serious: No
  Sender: FDA-Public Use
  Company Number: US-ASTRAZENECA-2013SE41810

PATIENT
  Age: 75 Year
  Sex: Male
  Weight: 90.3 kg

DRUGS (15)
  1. CRESTOR [Suspect]
     Route: 048
     Dates: start: 2012
  2. CRESTOR [Suspect]
     Route: 048
  3. CRESTOR [Suspect]
     Dosage: CUT THE 40 MG CRESTOR TABLETS TO GET THE DAILY-PRESCRIBED DOSE OF CRESTOR 20MG
     Route: 048
  4. METOPROL TARTRATE [Suspect]
     Route: 065
  5. FUROSEMIDE [Concomitant]
  6. AMLODIPINE [Concomitant]
  7. CLOPIDOGRIL [Concomitant]
  8. GLIPIZIDE [Concomitant]
  9. ATORVASTATIN [Concomitant]
  10. TAMSULOSIN [Concomitant]
  11. FINASTERIDE [Concomitant]
  12. RANITIDINE [Concomitant]
  13. ASPIRIN [Concomitant]
  14. JALYN [Concomitant]
  15. CENTRUM PLUS 50 [Concomitant]
     Dosage: 1 PILL

REACTIONS (3)
  - Weight increased [Unknown]
  - Memory impairment [Unknown]
  - Off label use [Unknown]
